FAERS Safety Report 7706689-3 (Version None)
Quarter: 2011Q3

REPORT INFORMATION
  Report Type: 
  Country: None (occurrence: None)
  Receive Date: 20110824
  Receipt Date: 20110815
  Transmission Date: 20111222
  Serious: Yes (Hospitalization)
  Sender: FDA-Public Use
  Company Number: DE-JNJFOC-20110806095

PATIENT
  Age: 51 Year
  Sex: Female

DRUGS (3)
  1. PALIPERIDONE [Suspect]
     Indication: PRODUCT USED FOR UNKNOWN INDICATION
     Route: 030
  2. TORSEMIDE [Concomitant]
     Route: 065
  3. LORAZEPAM [Concomitant]
     Route: 065

REACTIONS (1)
  - CONDITION AGGRAVATED [None]
